FAERS Safety Report 5978503-8 (Version None)
Quarter: 2008Q4

REPORT INFORMATION
  Report Type: 
  Country: None (occurrence: None)
  Receive Date: 20081204
  Receipt Date: 20081009
  Transmission Date: 20090506
  Serious: No
  Sender: FDA-Public Use
  Company Number: US-BAYER-200814035BCC

PATIENT
  Age: 22 Year
  Sex: Female
  Weight: 61 kg

DRUGS (1)
  1. ALEVE (CAPLET) [Suspect]
     Indication: MIGRAINE
     Dosage: AS USED: 220-440 MG  UNIT DOSE: 220 MG
     Route: 048
     Dates: start: 20081008

REACTIONS (2)
  - MIGRAINE [None]
  - TOOTHACHE [None]
